FAERS Safety Report 9038965 (Version 1)
Quarter: 2013Q1

REPORT INFORMATION
  Report Type: Spontaneous
  Country: US (occurrence: None)
  Receive Date: 20130123
  Receipt Date: 20130123
  Transmission Date: 20140127
  Serious: Yes (Death)
  Sender: FDA-Public Use
  Company Number: None

PATIENT
  Sex: Male

DRUGS (1)
  1. SENSIPAR [Suspect]
     Dosage: 120MG  DAILY  ORALLY?04/04/2012  TO  UNKNOWN
     Route: 048
     Dates: start: 20120404

REACTIONS (1)
  - Death [None]
